FAERS Safety Report 19369533 (Version 1)
Quarter: 2021Q2

REPORT INFORMATION
  Report Type: Spontaneous
  Country: US (occurrence: US)
  Receive Date: 20210602
  Receipt Date: 20210602
  Transmission Date: 20210717
  Serious: No
  Sender: FDA-Public Use
  Company Number: US-ROCHE-2777562

PATIENT
  Sex: Male
  Weight: 105.33 kg

DRUGS (5)
  1. MULTAQ [Concomitant]
     Active Substance: DRONEDARONE
     Indication: ATRIAL FIBRILLATION
     Route: 048
  2. TECFIDERA [Concomitant]
     Active Substance: DIMETHYL FUMARATE
  3. METOPROLOL. [Concomitant]
     Active Substance: METOPROLOL
     Indication: HYPERTENSION
     Route: 048
  4. REBIF [Concomitant]
     Active Substance: INTERFERON BETA-1A
  5. OCREVUS [Suspect]
     Active Substance: OCRELIZUMAB
     Indication: RELAPSING MULTIPLE SCLEROSIS
     Route: 042

REACTIONS (7)
  - Rash [Unknown]
  - Cyst [Unknown]
  - Diarrhoea [Unknown]
  - Vision blurred [Unknown]
  - Pain in extremity [Unknown]
  - Dizziness [Unknown]
  - Headache [Unknown]
